FAERS Safety Report 6165727-2 (Version None)
Quarter: 2009Q2

REPORT INFORMATION
  Report Type: 
  Country: None (occurrence: None)
  Receive Date: 20090422
  Receipt Date: 20090413
  Transmission Date: 20091009
  Serious: Yes (Hospitalization)
  Sender: FDA-Public Use
  Company Number: WAES 0904USA01848

PATIENT
  Age: 64 Year
  Sex: Male

DRUGS (1)
  1. DECADRON [Suspect]
     Indication: MULTIPLE MYELOMA
     Dosage: 40 MG/DAILY PO
     Route: 048
     Dates: start: 20071128

REACTIONS (4)
  - CONCUSSION [None]
  - FALL [None]
  - MASS [None]
  - PNEUMONIA [None]
